FAERS Safety Report 12862014 (Version 1)
Quarter: 2016Q4

REPORT INFORMATION
  Report Type: Spontaneous
  Country: US (occurrence: US)
  Receive Date: 20161019
  Receipt Date: 20161019
  Transmission Date: 20170207
  Serious: Yes (Hospitalization, Other)
  Sender: FDA-Public Use
  Company Number: PHHY2016US141913

PATIENT
  Age: 33 Month
  Sex: Male
  Weight: 13.2 kg

DRUGS (1)
  1. ONDANSETRON HCL [Suspect]
     Active Substance: ONDANSETRON HYDROCHLORIDE
     Indication: PRODUCT USED FOR UNKNOWN INDICATION
     Dosage: 8 MG, QD, SEVEN QD TABLETS
     Route: 048

REACTIONS (5)
  - Somnolence [Recovering/Resolving]
  - Sedation [Recovering/Resolving]
  - Electrocardiogram QT prolonged [Recovering/Resolving]
  - Vomiting [Unknown]
  - Accidental overdose [Unknown]
